FAERS Safety Report 10410001 (Version 2)
Quarter: 2015Q1

REPORT INFORMATION
  Report Type: Spontaneous
  Country: US (occurrence: US)
  Receive Date: 20140826
  Receipt Date: 20150324
  Transmission Date: 20150720
  Serious: Yes (Congenital Anomaly)
  Sender: FDA-Public Use
  Company Number: US-ELI_LILLY_AND_COMPANY-US201408006076

PATIENT

DRUGS (2)
  1. PROZAC [Suspect]
     Active Substance: FLUOXETINE HYDROCHLORIDE
     Indication: PRODUCT USED FOR UNKNOWN INDICATION
     Dosage: 20MG, QD
     Route: 064
     Dates: start: 19990723
  2. LEVONEX [Concomitant]
     Indication: DEEP VEIN THROMBOSIS

REACTIONS (8)
  - Congenital pulmonary valve atresia [Unknown]
  - Fallot^s tetralogy [Unknown]
  - Foetal exposure during pregnancy [Unknown]
  - Ventricular septal defect [Unknown]
  - Premature baby [Unknown]
  - Cardiac failure congestive [Unknown]
  - Congenital arterial malformation [Unknown]
  - Patent ductus arteriosus [Unknown]
